FAERS Safety Report 13411246 (Version 3)
Quarter: 2022Q4

REPORT INFORMATION
  Report Type: Spontaneous
  Country: US (occurrence: US)
  Receive Date: 20170406
  Receipt Date: 20221006
  Transmission Date: 20230113
  Serious: Yes (Other)
  Sender: FDA-Public Use
  Company Number: US-JNJFOC-20170306659

PATIENT
  Age: 14 Year
  Sex: Male

DRUGS (6)
  1. RISPERDAL [Suspect]
     Active Substance: RISPERIDONE
     Indication: Autism spectrum disorder
     Dosage: 0.25 MG TABLETS TWICE DAILY FOR 1 WEEK AND THEN GIVE 0. 25 MG IN AM AND 0.5 MG AT NIGHT?0.5 MG TWICE
     Route: 048
     Dates: start: 200602, end: 20060425
  2. RISPERDAL [Suspect]
     Active Substance: RISPERIDONE
     Indication: Stereotypy
  3. RISPERDAL [Suspect]
     Active Substance: RISPERIDONE
     Indication: Compulsions
  4. RISPERDAL [Suspect]
     Active Substance: RISPERIDONE
     Indication: Agitation
  5. RISPERDAL [Suspect]
     Active Substance: RISPERIDONE
     Indication: Tourette^s disorder
  6. INVEGA [Suspect]
     Active Substance: PALIPERIDONE
     Indication: Product used for unknown indication
     Route: 048

REACTIONS (2)
  - Weight increased [Not Recovered/Not Resolved]
  - Increased appetite [Not Recovered/Not Resolved]

NARRATIVE: CASE EVENT DATE: 20060201
